FAERS Safety Report 7931885-X (Version None)
Quarter: 2011Q4

REPORT INFORMATION
  Report Type: 
  Country: None (occurrence: None)
  Receive Date: 20111121
  Receipt Date: 20111117
  Transmission Date: 20120403
  Serious: Yes (Life-Threatening, Hospitalization)
  Sender: FDA-Public Use
  Company Number: FI-ASTRAZENECA-2011SE66665

PATIENT
  Age: 77 Year
  Sex: Female

DRUGS (7)
  1. METFORMIN HYDROCHLORIDE [Interacting]
  2. MOXONIDINE [Concomitant]
  3. SEVERAL OTHER MEDICINES [Concomitant]
  4. VIMOVO [Suspect]
     Indication: PAIN
     Dosage: 500MG/20MG, ONE TABLET ONCE PER DAY
     Route: 048
     Dates: start: 20110909
  5. VIMOVO [Interacting]
     Indication: FIBROMYALGIA
     Dosage: 500MG/20MG, ONE TABLET ONCE PER DAY
     Route: 048
     Dates: start: 20110909
  6. LANTUS [Concomitant]
  7. LINATIL COMP [Interacting]

REACTIONS (8)
  - ATRIAL FIBRILLATION [None]
  - BLOOD CREATININE INCREASED [None]
  - DIAPHRAGMALGIA [None]
  - RENAL FAILURE ACUTE [None]
  - DRUG INTERACTION [None]
  - BLOOD POTASSIUM INCREASED [None]
  - INAPPROPRIATE SCHEDULE OF DRUG ADMINISTRATION [None]
  - HEART RATE DECREASED [None]
